FAERS Safety Report 7417456-2 (Version None)
Quarter: 2011Q2

REPORT INFORMATION
  Report Type: 
  Country: None (occurrence: None)
  Receive Date: 20110412
  Receipt Date: 20110412
  Transmission Date: 20111010
  Serious: Yes (Other)
  Sender: FDA-Public Use
  Company Number: None

PATIENT
  Age: 61 Year
  Sex: Male
  Weight: 82.1011 kg

DRUGS (2)
  1. SUPREP BOWEL PREP KIT [Suspect]
     Indication: COLONOSCOPY
     Dosage: 6 OZ BOTTLE 2X 11 HOURS APART
     Dates: start: 20110330
  2. SUPREP BOWEL PREP KIT [Suspect]
     Indication: COLONOSCOPY
     Dosage: 6 OZ BOTTLE 2X 11 HOURS APART
     Dates: start: 20110331

REACTIONS (2)
  - PROCEDURAL HYPERTENSION [None]
  - FEELING ABNORMAL [None]
